FAERS Safety Report 17590766 (Version 2)
Quarter: 2020Q2

REPORT INFORMATION
  Report Type: Spontaneous
  Country: DK (occurrence: DK)
  Receive Date: 20200327
  Receipt Date: 20200504
  Transmission Date: 20200713
  Serious: Yes (Other)
  Sender: FDA-Public Use
  Company Number: DK-PFIZER INC-2020125334

PATIENT
  Age: 79 Year
  Sex: Female
  Weight: 75 kg

DRUGS (1)
  1. PIPERACILLIN/TAZOBACTAM [Suspect]
     Active Substance: PIPERACILLIN SODIUM\TAZOBACTAM SODIUM
     Dosage: UNK, 3X/DAY (4G PIPERACILLIN/100ML EVERY 8 HOURS (FIXED TIME) TIME: 30 MINUTES VELOCITY: 200ML/TIME)
     Route: 042

REACTIONS (1)
  - Hallucination [Recovered/Resolved with Sequelae]

NARRATIVE: CASE EVENT DATE: 20200220
